FAERS Safety Report 8013252-6 (Version None)
Quarter: 2011Q4

REPORT INFORMATION
  Report Type: 
  Country: None (occurrence: None)
  Receive Date: 20111229
  Receipt Date: 20111229
  Transmission Date: 20120403
  Serious: Yes (Hospitalization)
  Sender: FDA-Public Use
  Company Number: None

PATIENT
  Age: 51 Year
  Sex: Male
  Weight: 83.9 kg

DRUGS (1)
  1. TRAMADOL HCL [Suspect]
     Indication: PAIN
     Dosage: 50MG
     Route: 048

REACTIONS (14)
  - DIARRHOEA [None]
  - EYE MOVEMENT DISORDER [None]
  - FAECES DISCOLOURED [None]
  - PYREXIA [None]
  - CHILLS [None]
  - HYPERHIDROSIS [None]
  - DYSPNOEA [None]
  - POSTICTAL STATE [None]
  - ASTHENIA [None]
  - DECREASED APPETITE [None]
  - PRESYNCOPE [None]
  - GRAND MAL CONVULSION [None]
  - DIZZINESS [None]
  - URINARY INCONTINENCE [None]
